FAERS Safety Report 18664364 (Version 1)
Quarter: 2020Q4

REPORT INFORMATION
  Report Type: Spontaneous
  Country: DE (occurrence: DE)
  Receive Date: 20201225
  Receipt Date: 20201225
  Transmission Date: 20210114
  Serious: Yes (Other)
  Sender: FDA-Public Use
  Company Number: DE-TEVA-2020-DE-1860807

PATIENT
  Age: 70 Year
  Sex: Female
  Weight: 66 kg

DRUGS (5)
  1. GLUCOSE 5% [Concomitant]
     Active Substance: DEXTROSE
     Dosage: 250 ML BEFORE AND AFTER CARBOPLATIN ADMINISTRATION, UNIT  DOSE: 250 ML
     Route: 042
     Dates: start: 20201201
  2. CARBOPLATIN. [Suspect]
     Active Substance: CARBOPLATIN
     Indication: BREAST CANCER
     Dosage: IN GLUCOSE 5% 500 ML OVER 60 MINUTES, START OF THE INFUSION: 1:15 P.M. STOP OF THE INFUSION: 1:45 P.
     Route: 042
     Dates: start: 20201201
  3. NACL 0,9% [Concomitant]
     Dosage: OVER 30 MINUTES, UNIT DOSE: 250 ML
     Route: 042
     Dates: start: 20201201
  4. DEXAMETHASON [Concomitant]
     Active Substance: DEXAMETHASONE
     Indication: CHEMOTHERAPY SIDE EFFECT PROPHYLAXIS
     Dosage: IN NACL 0.9% FOR 15 MINUTES, UNIT DOSE: 8 MG
     Route: 042
     Dates: start: 20201201
  5. GRANISETRON [Concomitant]
     Active Substance: GRANISETRON
     Indication: CHEMOTHERAPY SIDE EFFECT PROPHYLAXIS
     Dosage: 1 MG
     Route: 042
     Dates: start: 20201201

REACTIONS (5)
  - Blood pressure increased [Recovered/Resolved]
  - Rash macular [Recovered/Resolved]
  - Dyspnoea [Recovered/Resolved]
  - Abdominal pain upper [Recovered/Resolved]
  - Paraesthesia oral [Recovered/Resolved]

NARRATIVE: CASE EVENT DATE: 20201201
